FAERS Safety Report 16689057 (Version 2)
Quarter: 2019Q3

REPORT INFORMATION
  Report Type: Spontaneous
  Country: PT (occurrence: PT)
  Receive Date: 20190809
  Receipt Date: 20190817
  Transmission Date: 20191004
  Serious: Yes (Hospitalization, Other)
  Sender: FDA-Public Use
  Company Number: PT-009507513-1908PRT000297

PATIENT
  Age: 68 Year
  Sex: Female

DRUGS (9)
  1. LORAZEPAM. [Suspect]
     Active Substance: LORAZEPAM
     Indication: BIPOLAR DISORDER
     Dosage: 2.5 MG, BID
     Route: 065
  2. OLANZAPINE. [Suspect]
     Active Substance: OLANZAPINE
     Indication: BIPOLAR DISORDER
     Dosage: 10 MG, BID
     Route: 065
  3. FLUOXETINE [Suspect]
     Active Substance: FLUOXETINE HYDROCHLORIDE
     Indication: PRODUCT USED FOR UNKNOWN INDICATION
     Dosage: UNK
     Route: 065
  4. THERAPY UNSPECIFIED [Suspect]
     Active Substance: UNSPECIFIED INGREDIENT
  5. CARBIDOPA (+) LEVODOPA [Suspect]
     Active Substance: CARBIDOPA\LEVODOPA
     Indication: PRODUCT USED FOR UNKNOWN INDICATION
     Dosage: 100/25 MG, QID
     Route: 065
  6. VALPROATE SODIUM. [Suspect]
     Active Substance: VALPROATE SODIUM
     Indication: BIPOLAR DISORDER
     Dosage: 500 MG, BID, (1000 MG, QD)
     Route: 065
  7. TRIHEXYPHENIDYL HYDROCHLORIDE. [Suspect]
     Active Substance: TRIHEXYPHENIDYL HYDROCHLORIDE
     Indication: PRODUCT USED FOR UNKNOWN INDICATION
     Dosage: 10 MG, QD
     Route: 065
  8. ARIPIPRAZOLE. [Suspect]
     Active Substance: ARIPIPRAZOLE
     Indication: PRODUCT USED FOR UNKNOWN INDICATION
     Dosage: 15 MG, BID
     Route: 065
  9. RISPERIDONE. [Suspect]
     Active Substance: RISPERIDONE
     Indication: PRODUCT USED FOR UNKNOWN INDICATION
     Dosage: 3 MG, BID
     Route: 065

REACTIONS (20)
  - Transient aphasia [Unknown]
  - Cognitive disorder [Recovering/Resolving]
  - Musculoskeletal stiffness [Recovered/Resolved]
  - Cerebral atrophy [Unknown]
  - Ataxia [Recovered/Resolved]
  - Depressed level of consciousness [Unknown]
  - Mood swings [Unknown]
  - Locked-in syndrome [Recovered/Resolved]
  - Thyroid mass [Unknown]
  - Gait disturbance [Recovered/Resolved]
  - Delirium [Unknown]
  - Central nervous system lesion [Unknown]
  - Autoimmune thyroiditis [Unknown]
  - Generalised tonic-clonic seizure [Unknown]
  - Tremor [Recovered/Resolved]
  - Psychiatric decompensation [Unknown]
  - Mania [Unknown]
  - Parkinsonism [Unknown]
  - Confusional state [Unknown]
  - Normochromic normocytic anaemia [Unknown]
